FAERS Safety Report 8076645-7 (Version None)
Quarter: 2012Q1

REPORT INFORMATION
  Report Type: 
  Country: None (occurrence: None)
  Receive Date: 20120127
  Receipt Date: 20120113
  Transmission Date: 20120608
  Serious: Yes (Hospitalization)
  Sender: FDA-Public Use
  Company Number: PHHO2011PL18202

PATIENT
  Age: 70 Year
  Sex: Female
  Weight: 71 kg

DRUGS (14)
  1. PREDNISONE TAB [Suspect]
     Dosage: 5 MG, DAILY
     Route: 048
     Dates: start: 20091007
  2. CYCLOSPORINE [Suspect]
     Dosage: 150 MG EVERY OTHER DAY ALTERNATING WITH 125 MG EVERY OTHER DAY
     Dates: start: 20110118
  3. MYCOPHENOLATE MOFETIL [Suspect]
     Dosage: 1000 MG, BID
     Route: 048
     Dates: start: 20091007
  4. CYCLOSPORINE [Suspect]
     Dosage: 150 MG, UNK
     Route: 048
     Dates: start: 20101110, end: 20110117
  5. CYCLOSPORINE [Suspect]
     Indication: RENAL TRANSPLANT
     Dosage: 75 MG, BID
     Route: 048
     Dates: start: 20091004
  6. CYCLOSPORINE [Suspect]
     Dosage: 150 MG, UNK
     Route: 048
     Dates: start: 20091119, end: 20091126
  7. PREDNISONE TAB [Suspect]
     Indication: RENAL TRANSPLANT
     Dosage: 5 MG, UNK
     Route: 048
     Dates: start: 20081001
  8. CYCLOSPORINE [Suspect]
     Dosage: 125 MG, UNK
     Route: 048
     Dates: start: 20091127, end: 20101109
  9. MYCOPHENOLATE MOFETIL [Suspect]
     Dosage: 500 MG, BID
     Route: 048
     Dates: start: 20110911
  10. MYCOPHENOLATE MOFETIL [Suspect]
     Dosage: 1000 MG, BID
     Route: 048
     Dates: start: 20110916
  11. ATORVASTATIN CALCIUM [Concomitant]
     Dosage: UNK
     Dates: start: 20090408
  12. MYCOPHENOLATE MOFETIL [Suspect]
     Indication: RENAL TRANSPLANT
     Dosage: 1000 MG, BID
     Route: 048
     Dates: start: 20081001, end: 20110910
  13. CYCLOSPORINE [Suspect]
     Dosage: 150 MG, UNK
     Route: 048
     Dates: start: 20091007, end: 20091027
  14. CYCLOSPORINE [Suspect]
     Dosage: 125 MG, UNK
     Route: 048
     Dates: start: 20091028, end: 20091118

REACTIONS (1)
  - GASTRITIS [None]
